FAERS Safety Report 9829728 (Version 1)
Quarter: 2014Q1

REPORT INFORMATION
  Report Type: Spontaneous
  Country: IN (occurrence: IN)
  Receive Date: 20140120
  Receipt Date: 20140120
  Transmission Date: 20141002
  Serious: Yes (Hospitalization, Other)
  Sender: FDA-Public Use
  Company Number: IN-ACCORD-021279

PATIENT
  Age: 65 Year
  Sex: Female

DRUGS (6)
  1. CLONAZEPAM [Suspect]
     Indication: DEPRESSION
  2. ESCITALOPRAM [Interacting]
     Indication: DEPRESSION
  3. LINEZOLID [Interacting]
     Indication: PNEUMONITIS
     Route: 042
  4. GUAIFENESIN [Concomitant]
  5. PARACETAMOL [Concomitant]
  6. AMBROXOL [Concomitant]

REACTIONS (3)
  - Drug interaction [Recovered/Resolved]
  - Serotonin syndrome [Recovered/Resolved]
  - Somnolence [Unknown]
